FAERS Safety Report 5621742-6 (Version None)
Quarter: 2008Q1

REPORT INFORMATION
  Report Type: 
  Country: None (occurrence: None)
  Receive Date: 20080211
  Receipt Date: 20080201
  Transmission Date: 20080703
  Serious: Yes (Other)
  Sender: FDA-Public Use
  Company Number: PHFR2008GB00769

PATIENT

DRUGS (1)
  1. SALAGEN [Suspect]
     Indication: DRY MOUTH

REACTIONS (1)
  - OPEN ANGLE GLAUCOMA [None]
